FAERS Safety Report 25678801 (Version 1)
Quarter: 2025Q3

REPORT INFORMATION
  Report Type: Spontaneous
  Country: CA (occurrence: CA)
  Receive Date: 20250814
  Receipt Date: 20250814
  Transmission Date: 20251020
  Serious: Yes (Other)
  Sender: ORGANON
  Company Number: CA-ORGANON-O2508CAN000961

PATIENT
  Age: 62 Year
  Sex: Male

DRUGS (2)
  1. REMERON [Suspect]
     Active Substance: MIRTAZAPINE
     Indication: Insomnia
     Dosage: 45 MILLIGRAM, 1 EVERY 1 DAYS
     Route: 048
  2. REMERON [Suspect]
     Active Substance: MIRTAZAPINE
     Indication: Depression

REACTIONS (2)
  - Pruritus [Recovered/Resolved]
  - Therapy change [Recovered/Resolved]
